FAERS Safety Report 13738583 (Version 1)
Quarter: 2017Q3

REPORT INFORMATION
  Report Type: Report from Study
  Country: US (occurrence: US)
  Receive Date: 20170710
  Receipt Date: 20170710
  Transmission Date: 20171127
  Serious: No
  Sender: FDA-Public Use
  Company Number: US-SAOL THERAPEUTICS-2016SAO01183

PATIENT
  Sex: Male

DRUGS (5)
  1. GABAPENTIN. [Concomitant]
     Active Substance: GABAPENTIN
  2. BACLOFEN. [Suspect]
     Active Substance: BACLOFEN
     Indication: PAIN
     Dosage: 17.27 ?G, \DAY
     Route: 037
     Dates: start: 20160224
  3. BACLOFEN. [Suspect]
     Active Substance: BACLOFEN
     Dosage: 14.42 ?G, \DAY
     Route: 037
     Dates: end: 20160224
  4. MORPHINE [Suspect]
     Active Substance: MORPHINE
     Dosage: 0.2883 MG, \DAY
     Route: 037
     Dates: end: 20160224
  5. MORPHINE [Suspect]
     Active Substance: MORPHINE
     Dosage: 0.3455 MG, \DAY
     Route: 037
     Dates: start: 20160224

REACTIONS (1)
  - Sudden onset of sleep [Recovered/Resolved]
